FAERS Safety Report 6857957-9 (Version None)
Quarter: 2010Q3

REPORT INFORMATION
  Report Type: 
  Country: None (occurrence: None)
  Receive Date: 20100714
  Receipt Date: 20100702
  Transmission Date: 20110219
  Serious: Yes (Hospitalization)
  Sender: FDA-Public Use
  Company Number: 010198

PATIENT
  Sex: Female

DRUGS (4)
  1. KEPPRA [Suspect]
     Indication: CONVULSION
     Dosage: 1500MG THERAPY
     Dates: start: 20100118
  2. MARCUMAR [Concomitant]
  3. LEVOTHYROXINE SODIUM [Concomitant]
  4. REMERGIL [Concomitant]

REACTIONS (26)
  - ACUTE HEPATIC FAILURE [None]
  - AUTOIMMUNE THYROIDITIS [None]
  - BENIGN NEOPLASM OF ADRENAL GLAND [None]
  - BLOOD AMYLASE INCREASED [None]
  - BLOOD IMMUNOGLOBULIN M INCREASED [None]
  - CEREBRAL HAEMORRHAGE [None]
  - CEREBRAL INFARCTION [None]
  - CHOLELITHIASIS [None]
  - COELIAC ARTERY STENOSIS [None]
  - DRUG TOXICITY [None]
  - ELECTROCARDIOGRAM ST SEGMENT DEPRESSION [None]
  - GASTRITIS [None]
  - GRAND MAL CONVULSION [None]
  - HAEMATOMA [None]
  - HEPATIC CIRRHOSIS [None]
  - HEPATITIS TOXIC [None]
  - IRON DEFICIENCY ANAEMIA [None]
  - LIPASE INCREASED [None]
  - LIVER DISORDER [None]
  - LIVER INJURY [None]
  - PLEURAL EFFUSION [None]
  - PSYCHOTIC DISORDER [None]
  - REFLUX OESOPHAGITIS [None]
  - SOFT TISSUE DISORDER [None]
  - URINARY TRACT INFECTION [None]
  - VARICES OESOPHAGEAL [None]
